FAERS Safety Report 9373431 (Version 1)
Quarter: 2013Q2

REPORT INFORMATION
  Report Type: Spontaneous
  Country: US (occurrence: US)
  Receive Date: 20130627
  Receipt Date: 20130627
  Transmission Date: 20140414
  Serious: Yes (Hospitalization)
  Sender: FDA-Public Use
  Company Number: US-TEVA-415246USA

PATIENT
  Age: 64 Year
  Sex: Female
  Weight: 78.09 kg

DRUGS (3)
  1. TEVA-WARFARIN [Suspect]
     Dates: start: 201208
  2. TEVA-WARFARIN [Suspect]
  3. TARO-WARFARIN [Suspect]
     Dates: start: 201208

REACTIONS (4)
  - International normalised ratio abnormal [Unknown]
  - Feeling abnormal [Unknown]
  - Blood pressure increased [None]
  - Lip swelling [None]
